FAERS Safety Report 17910965 (Version 1)
Quarter: 2020Q2

REPORT INFORMATION
  Report Type: Spontaneous
  Country: US (occurrence: US)
  Receive Date: 20200618
  Receipt Date: 20200618
  Transmission Date: 20200714
  Serious: No
  Sender: FDA-Public Use
  Company Number: US-DRREDDYS-USA/USA/20/0123980

PATIENT
  Sex: Female

DRUGS (1)
  1. FONDAPARINUX SODIUM 2.5 MG/0.5 ML [Suspect]
     Active Substance: FONDAPARINUX SODIUM
     Indication: PRODUCT USED FOR UNKNOWN INDICATION
     Dosage: 2.5MG/0.5ML
     Route: 058

REACTIONS (1)
  - Product administration error [Unknown]
